FAERS Safety Report 18117055 (Version 1)
Quarter: 2020Q3

REPORT INFORMATION
  Report Type: Report from Study
  Country: CA (occurrence: CA)
  Receive Date: 20200805
  Receipt Date: 20200805
  Transmission Date: 20201103
  Serious: Yes (Death)
  Sender: FDA-Public Use
  Company Number: CA-HLS-202000883

PATIENT
  Age: 54 Year
  Sex: Male

DRUGS (1)
  1. CLOZARIL [Suspect]
     Active Substance: CLOZAPINE
     Route: 048
     Dates: start: 20140627, end: 20200715

REACTIONS (3)
  - Drug ineffective [Unknown]
  - Constipation [Unknown]
  - Surgery [Fatal]

NARRATIVE: CASE EVENT DATE: 20200715
